FAERS Safety Report 11427476 (Version 1)
Quarter: 2015Q3

REPORT INFORMATION
  Report Type: Spontaneous
  Country: US (occurrence: US)
  Receive Date: 20150827
  Receipt Date: 20150827
  Transmission Date: 20151125
  Serious: No
  Sender: FDA-Public Use
  Company Number: US-SA-2015SA019490

PATIENT
  Age: 9 Year
  Sex: Female
  Weight: 47.17 kg

DRUGS (8)
  1. LIDOCAINE/PRILOCAINE [Concomitant]
  2. ACETAMINOPHEN. [Concomitant]
     Active Substance: ACETAMINOPHEN
  3. NORMAL SALINE [Concomitant]
     Active Substance: SODIUM CHLORIDE
  4. EPIPEN [Concomitant]
     Active Substance: EPINEPHRINE
  5. FABRAZYME [Suspect]
     Active Substance: AGALSIDASE BETA
     Indication: LIPIDOSIS
     Route: 042
  6. FABRAZYME [Suspect]
     Active Substance: AGALSIDASE BETA
     Indication: LIPIDOSIS
     Route: 042
  7. DIPHENHYDRAMINE. [Concomitant]
     Active Substance: DIPHENHYDRAMINE
  8. SOLU-CORTEF [Concomitant]
     Active Substance: HYDROCORTISONE SODIUM SUCCINATE

REACTIONS (3)
  - Cough [Not Recovered/Not Resolved]
  - Body temperature increased [Not Recovered/Not Resolved]
  - Asthma [Not Recovered/Not Resolved]
